FAERS Safety Report 8162254-8 (Version None)
Quarter: 2012Q1

REPORT INFORMATION
  Report Type: 
  Country: None (occurrence: None)
  Receive Date: 20120224
  Receipt Date: 20120216
  Transmission Date: 20120608
  Serious: Yes (Other)
  Sender: FDA-Public Use
  Company Number: JP-ASTELLAS-2012JP001450

PATIENT
  Age: 12 Year
  Sex: Female

DRUGS (5)
  1. ANTIBIOTICS [Concomitant]
     Route: 065
  2. LEVOTHYROXINE SODIUM [Concomitant]
     Dosage: 100 UG, UNKNOWN/D
     Route: 065
  3. LEVOTHYROXINE SODIUM [Concomitant]
     Dosage: 25 UG, UNKNOWN/D
     Route: 065
  4. PROGRAF [Suspect]
     Indication: IMMUNOSUPPRESSANT DRUG THERAPY
     Route: 065
  5. PREDNISOLONE [Concomitant]
     Dosage: 20 MG, UNKNOWN/D
     Route: 065

REACTIONS (4)
  - GRAFT VERSUS HOST DISEASE [None]
  - THYROIDITIS [None]
  - DRUG INEFFECTIVE [None]
  - SECONDARY HYPOTHYROIDISM [None]
